FAERS Safety Report 20166481 (Version 4)
Quarter: 2023Q4

REPORT INFORMATION
  Report Type: Spontaneous
  Country: JP (occurrence: JP)
  Receive Date: 20211209
  Receipt Date: 20231218
  Transmission Date: 20240110
  Serious: Yes (Life-Threatening, Hospitalization)
  Sender: FDA-Public Use
  Company Number: JP-AMGEN-JPNSP2020106269

PATIENT
  Age: 15 Year
  Sex: Male
  Weight: 45 kg

DRUGS (7)
  1. BLINCYTO [Suspect]
     Active Substance: BLINATUMOMAB
     Indication: B precursor type acute leukaemia
     Dosage: 9 MICROGRAM, QD
     Route: 041
     Dates: start: 20200622, end: 20200623
  2. BLINCYTO [Suspect]
     Active Substance: BLINATUMOMAB
     Dosage: 28 MICROGRAM, QD
     Route: 041
  3. BLINCYTO [Suspect]
     Active Substance: BLINATUMOMAB
     Dosage: 5 MICROGRAM/SQ. METER, QD
     Route: 041
     Dates: start: 20200629, end: 20200719
  4. DEXAMETHASONE SODIUM PHOSPHATE [Suspect]
     Active Substance: DEXAMETHASONE PHOSPHATE\DEXAMETHASONE SODIUM PHOSPHATE
     Indication: Myoclonus
     Dosage: 14.5 MILLIGRAM
     Route: 065
     Dates: start: 20200629, end: 20200710
  5. DEXAMETHASONE SODIUM PHOSPHATE [Suspect]
     Active Substance: DEXAMETHASONE PHOSPHATE\DEXAMETHASONE SODIUM PHOSPHATE
     Indication: Depressed level of consciousness
  6. DEXAMETHASONE SODIUM PHOSPHATE [Suspect]
     Active Substance: DEXAMETHASONE PHOSPHATE\DEXAMETHASONE SODIUM PHOSPHATE
     Indication: Pyrexia
  7. DEXAMETHASONE SODIUM PHOSPHATE [Suspect]
     Active Substance: DEXAMETHASONE PHOSPHATE\DEXAMETHASONE SODIUM PHOSPHATE
     Indication: Prophylaxis

REACTIONS (12)
  - Depressed level of consciousness [Recovered/Resolved]
  - Cytokine release syndrome [Recovered/Resolved]
  - Myoclonus [Recovered/Resolved]
  - Muscle spasms [Recovered/Resolved]
  - Drooling [Recovered/Resolved]
  - Incontinence [Recovered/Resolved]
  - Muscle twitching [Recovered/Resolved]
  - Somnolence [Recovered/Resolved]
  - Seizure [Unknown]
  - Immunoglobulins decreased [Unknown]
  - Drug ineffective [Unknown]
  - Platelet count decreased [Unknown]

NARRATIVE: CASE EVENT DATE: 20200601
